FAERS Safety Report 23183105 (Version 1)
Quarter: 2023Q4

REPORT INFORMATION
  Report Type: Spontaneous
  Country: MX (occurrence: None)
  Receive Date: 20231114
  Receipt Date: 20231114
  Transmission Date: 20240110
  Serious: Yes (Other)
  Sender: FDA-Public Use
  Company Number: 2023A200811

PATIENT
  Age: 749 Month
  Sex: Female
  Weight: 61.5 kg

DRUGS (1)
  1. FASENRA [Suspect]
     Active Substance: BENRALIZUMAB
     Route: 058

REACTIONS (13)
  - Chronic obstructive pulmonary disease [Recovered/Resolved]
  - Swelling [Not Recovered/Not Resolved]
  - Pruritus [Not Recovered/Not Resolved]
  - Mass [Not Recovered/Not Resolved]
  - Ear swelling [Unknown]
  - Peripheral swelling [Unknown]
  - Skin warm [Unknown]
  - Sleep disorder due to general medical condition, insomnia type [Unknown]
  - Oedema [Unknown]
  - Swelling face [Recovering/Resolving]
  - Pain of skin [Recovered/Resolved]
  - Skin mass [Recovered/Resolved]
  - Urticaria [Recovered/Resolved]

NARRATIVE: CASE EVENT DATE: 20230901
